FAERS Safety Report 21274224 (Version 1)
Quarter: 2022Q3

REPORT INFORMATION
  Report Type: Spontaneous
  Country: CN (occurrence: CN)
  Receive Date: 20220831
  Receipt Date: 20220831
  Transmission Date: 20221027
  Serious: Yes (Other)
  Sender: FDA-Public Use
  Company Number: CN-PFIZER INC-PV202200051839

PATIENT
  Age: 57 Year
  Sex: Male
  Weight: 74.5 kg

DRUGS (2)
  1. CARDURA XL [Suspect]
     Active Substance: DOXAZOSIN MESYLATE
     Indication: Benign prostatic hyperplasia
     Dosage: 4 MG, 1X/DAY
     Route: 048
     Dates: start: 20220807, end: 20220812
  2. RELINQING [Concomitant]
     Indication: Urinary tract infection
     Dosage: 4 G, 3X/DAY
     Route: 048
     Dates: start: 20220807, end: 20220814

REACTIONS (4)
  - Syncope [Recovered/Resolved]
  - Altered state of consciousness [Recovered/Resolved]
  - Dizziness [Recovered/Resolved]
  - Discomfort [Recovered/Resolved]

NARRATIVE: CASE EVENT DATE: 20220808
